FAERS Safety Report 10305536 (Version 2)
Quarter: 2014Q3

REPORT INFORMATION
  Report Type: Spontaneous
  Country: IT (occurrence: IT)
  Receive Date: 20140715
  Receipt Date: 20140724
  Transmission Date: 20150326
  Serious: Yes (Hospitalization)
  Sender: FDA-Public Use
  Company Number: IT-MYLANLABS-2014S1016214

PATIENT
  Age: 41 Year
  Sex: Female

DRUGS (2)
  1. PRAZENE [Suspect]
     Active Substance: PRAZEPAM
     Indication: DEPRESSION
     Dates: start: 20130125, end: 20130125
  2. CITALOPRAM HYDROCHLORIDE [Suspect]
     Active Substance: CITALOPRAM HYDROCHLORIDE
     Indication: DEPRESSION
     Dates: start: 20130125, end: 20130125

REACTIONS (4)
  - Hyporeflexia [Recovered/Resolved]
  - Mydriasis [Recovered/Resolved]
  - Drug abuse [Recovered/Resolved]
  - Sopor [Recovered/Resolved]

NARRATIVE: CASE EVENT DATE: 20130125
